FAERS Safety Report 9670677 (Version 1)
Quarter: 2013Q4

REPORT INFORMATION
  Report Type: Report from Study
  Country: GB (occurrence: GB)
  Receive Date: 20131106
  Receipt Date: 20131106
  Transmission Date: 20140711
  Serious: Yes (Hospitalization)
  Sender: FDA-Public Use
  Company Number: GB-ROCHE-1299674

PATIENT
  Sex: Female
  Weight: 93 kg

DRUGS (11)
  1. RITUXIMAB [Suspect]
     Indication: RHEUMATOID ARTHRITIS
     Route: 065
     Dates: start: 20120115
  2. FLUOXETINE [Concomitant]
     Route: 065
  3. CALCICHEW D3 [Concomitant]
     Route: 048
  4. MORPHINE SULFATE [Concomitant]
     Dosage: 10 MG/5 ML SOLUTION 10 MG ON
     Route: 065
  5. MACROGOL [Concomitant]
     Route: 065
  6. PARACETAMOL [Concomitant]
     Dosage: 1 G QDS
     Route: 065
  7. LANSOPRAZOLE [Concomitant]
     Route: 065
  8. LEVOTHYROXINE [Concomitant]
     Route: 065
  9. LACRI-LUBE (CANADA) [Concomitant]
     Route: 065
  10. GABAPENTIN [Concomitant]
     Route: 065
  11. HYPROMELLOSE EYE DROPS [Concomitant]
     Dosage: 1 DROP EACH EYE QDS
     Route: 065

REACTIONS (2)
  - Pain [Unknown]
  - Mobility decreased [Unknown]
